FAERS Safety Report 8473936 (Version 2)
Quarter: 2012Q4

REPORT INFORMATION
  Report Type: 
  Country: US (occurrence: US)
  Receive Date: 20120323
  Receipt Date: 20121026
  Transmission Date: 20130627
  Serious: Yes (Other)
  Sender: FDA-Public Use
  Company Number: US-PFIZER INC-2012071451

PATIENT
  Age: 59 Year
  Sex: Female
  Weight: 59 kg

DRUGS (3)
  1. AROMASIN [Suspect]
     Indication: BREAST CANCER FEMALE
     Dosage: 25 mg, daily
     Dates: start: 201107
  2. ANASTROZOLE [Suspect]
     Indication: BREAST CANCER
     Dosage: UNK
     Dates: start: 20090522, end: 201106
  3. CALCIUM [Concomitant]
     Indication: OSTEOARTHRITIS
     Dosage: UNK

REACTIONS (9)
  - Arthralgia [Recovering/Resolving]
  - Joint stiffness [Unknown]
  - Groin pain [Unknown]
  - Fall [Unknown]
  - Hot flush [Unknown]
  - Erythema [Unknown]
  - Hair texture abnormal [Unknown]
  - Alopecia [Unknown]
  - Hair colour changes [Unknown]
